FAERS Safety Report 23758516 (Version 2)
Quarter: 2024Q2

REPORT INFORMATION
  Report Type: Report from Study
  Country: CA (occurrence: CA)
  Receive Date: 20240418
  Receipt Date: 20240426
  Transmission Date: 20240716
  Serious: Yes (Death, Other)
  Sender: FDA-Public Use
  Company Number: CA-JAZZ PHARMACEUTICALS-2024-CA-006106

PATIENT

DRUGS (4)
  1. LURBINECTEDIN [Suspect]
     Active Substance: LURBINECTEDIN
     Indication: Small cell lung cancer extensive stage
     Dosage: UNK
     Dates: start: 20230424
  2. LURBINECTEDIN [Suspect]
     Active Substance: LURBINECTEDIN
     Dosage: UNK
     Dates: start: 20230515
  3. LURBINECTEDIN [Suspect]
     Active Substance: LURBINECTEDIN
     Dosage: UNK
     Dates: start: 20230605
  4. LURBINECTEDIN [Suspect]
     Active Substance: LURBINECTEDIN
     Dosage: UNK
     Dates: start: 20230626

REACTIONS (1)
  - Lung cancer metastatic [Fatal]
